FAERS Safety Report 7318673-2 (Version None)
Quarter: 2011Q1

REPORT INFORMATION
  Report Type: 
  Country: None (occurrence: None)
  Receive Date: 20110228
  Receipt Date: 20110214
  Transmission Date: 20110831
  Serious: Yes (Hospitalization)
  Sender: FDA-Public Use
  Company Number: DE-RANBAXY-2010RR-39957

PATIENT
  Age: 28 Year
  Sex: Female

DRUGS (2)
  1. OLANZAPINE [Suspect]
     Indication: SUICIDE ATTEMPT
     Dosage: 2000 MG, UNK
     Route: 048
  2. SERTRALINE [Suspect]
     Indication: SUICIDE ATTEMPT
     Dosage: 420 MG, UNK
     Route: 048

REACTIONS (12)
  - HYPERTENSION [None]
  - NEUROLEPTIC MALIGNANT SYNDROME [None]
  - TACHYPNOEA [None]
  - ALTERED STATE OF CONSCIOUSNESS [None]
  - OVERDOSE [None]
  - AKINESIA [None]
  - CHILLS [None]
  - CONFUSIONAL STATE [None]
  - MUSCLE RIGIDITY [None]
  - OPISTHOTONUS [None]
  - TACHYCARDIA [None]
  - HYPOREFLEXIA [None]
